FAERS Safety Report 4597213-5 (Version None)
Quarter: 2005Q1

REPORT INFORMATION
  Report Type: 
  Country: None (occurrence: None)
  Receive Date: 20050301
  Receipt Date: 20050217
  Transmission Date: 20050727
  Serious: Yes (Life-Threatening)
  Sender: FDA-Public Use
  Company Number: 2005AP01169

PATIENT
  Age: 57 Year
  Sex: Female
  Weight: 44.95 kg

DRUGS (10)
  1. IRESSA [Suspect]
     Indication: NON-SMALL CELL LUNG CANCER
     Dosage: 250 MG DAILY PO
     Route: 048
     Dates: start: 20050124, end: 20050212
  2. IRESSA [Suspect]
     Indication: NON-SMALL CELL LUNG CANCER
     Dosage: 250 MG DAILY PO
     Route: 048
     Dates: start: 20050215, end: 20050215
  3. PREDONINE [Concomitant]
  4. GASTER [Concomitant]
  5. MEILAX [Concomitant]
  6. DORNER [Concomitant]
  7. CELESTONE [Concomitant]
  8. HIRUDOID [Concomitant]
  9. DALACIN [Concomitant]
  10. SELBEX [Concomitant]

REACTIONS (3)
  - DISSEMINATED INTRAVASCULAR COAGULATION [None]
  - SEPTIC SHOCK [None]
  - URINARY TRACT INFECTION [None]
